FAERS Safety Report 21836779 (Version 2)
Quarter: 2023Q1

REPORT INFORMATION
  Report Type: Report from Study
  Country: US (occurrence: US)
  Receive Date: 20230109
  Receipt Date: 20230116
  Transmission Date: 20230418
  Serious: Yes (Hospitalization, Other)
  Sender: FDA-Public Use
  Company Number: US-ABBVIE-4257278

PATIENT
  Sex: Male
  Weight: 111 kg

DRUGS (2)
  1. SKYRIZI [Suspect]
     Active Substance: RISANKIZUMAB-RZAA
     Indication: Psoriasis
     Dosage: FIRST ADMIN DATE: SEP 2022
     Route: 058
  2. SKYRIZI [Suspect]
     Active Substance: RISANKIZUMAB-RZAA
     Dosage: FIRST ADMIN DATE: 13 APR 2022
     Route: 058
     Dates: end: 2022

REACTIONS (11)
  - Post procedural infection [Recovering/Resolving]
  - Foot operation [Unknown]
  - Psoriasis [Recovering/Resolving]
  - Balance disorder [Not Recovered/Not Resolved]
  - Psoriasis [Recovered/Resolved]
  - Frustration tolerance decreased [Not Recovered/Not Resolved]
  - Sleep apnoea syndrome [Not Recovered/Not Resolved]
  - Gait inability [Unknown]
  - Endocrine ophthalmopathy [Not Recovered/Not Resolved]
  - Wound infection [Unknown]
  - Loss of personal independence in daily activities [Not Recovered/Not Resolved]

NARRATIVE: CASE EVENT DATE: 20220101
